FAERS Safety Report 24074524 (Version 2)
Quarter: 2024Q3

REPORT INFORMATION
  Report Type: Report from Study
  Country: AU (occurrence: AU)
  Receive Date: 20240710
  Receipt Date: 20240807
  Transmission Date: 20241017
  Serious: Yes (Other)
  Sender: NOVARTIS
  Company Number: AU-002147023-NVSC2024AU077306

PATIENT
  Age: 66 Year
  Sex: Female

DRUGS (1)
  1. LEQVIO [Suspect]
     Active Substance: INCLISIRAN SODIUM
     Indication: Product used for unknown indication
     Dosage: 284 MG (FIRST INJECTION)
     Route: 058
     Dates: start: 20240207, end: 20240426

REACTIONS (13)
  - Tongue disorder [Recovered/Resolved]
  - Plicated tongue [Recovered/Resolved]
  - Swollen tongue [Recovered/Resolved]
  - Diarrhoea [Recovered/Resolved]
  - Urinary tract infection [Recovered/Resolved]
  - Dysuria [Unknown]
  - Malaise [Recovered/Resolved]
  - Bone pain [Recovered/Resolved with Sequelae]
  - Pain in extremity [Unknown]
  - Feeling cold [Unknown]
  - Myalgia [Recovered/Resolved with Sequelae]
  - Ageusia [Recovered/Resolved]
  - Tongue ulceration [Recovered/Resolved]

NARRATIVE: CASE EVENT DATE: 20240327
